FAERS Safety Report 24717375 (Version 2)
Quarter: 2024Q4

REPORT INFORMATION
  Report Type: Spontaneous
  Country: IT (occurrence: IT)
  Receive Date: 20241210
  Receipt Date: 20241212
  Transmission Date: 20250115
  Serious: Yes (Other)
  Sender: FRESENIUS KABI
  Company Number: None

PATIENT
  Age: 80 Year
  Sex: Female

DRUGS (1)
  1. PACLITAXEL [Suspect]
     Active Substance: PACLITAXEL
     Indication: Uterine cancer
     Dosage: PACLITAXEL 84,60 MG D1,8,15 Q28?FOA: CONCENTRATE FOR SOLUTION FOR INFUSION
     Route: 042
     Dates: start: 20241119, end: 20241119

REACTIONS (3)
  - Hot flush [Recovered/Resolved]
  - Dyspnoea [Recovered/Resolved]
  - Oxygen saturation decreased [Recovered/Resolved]

NARRATIVE: CASE EVENT DATE: 20241119
